FAERS Safety Report 10013438 (Version 2)
Quarter: 2014Q1

REPORT INFORMATION
  Report Type: Report from Study
  Country: NL (occurrence: NL)
  Receive Date: 20140314
  Receipt Date: 20140314
  Transmission Date: 20141002
  Serious: Yes (Death)
  Sender: FDA-Public Use
  Company Number: PHHY2014NL009027

PATIENT
  Sex: Male

DRUGS (2)
  1. SANDOSTATIN LAR [Suspect]
     Indication: NEUROENDOCRINE TUMOUR
     Dosage: 20 MG PER 2 ML, ONCE EVERY 2 WEEKS
     Route: 030
  2. SANDOSTATIN LAR [Suspect]
     Dosage: 20 MG PER 2 ML, ONCE EVERY 2 WEEKS
     Route: 030
     Dates: start: 20140114

REACTIONS (5)
  - Fluid retention [Fatal]
  - Terminal state [Fatal]
  - Dyspnoea [Fatal]
  - Carcinoid heart disease [Fatal]
  - Malignant neoplasm progression [Fatal]
